FAERS Safety Report 23898169 (Version 1)
Quarter: 2024Q2

REPORT INFORMATION
  Report Type: Spontaneous
  Country: BR (occurrence: BR)
  Receive Date: 20240524
  Receipt Date: 20240524
  Transmission Date: 20240715
  Serious: Yes (Other)
  Sender: FDA-Public Use
  Company Number: BR-JNJFOC-20240551907

PATIENT
  Sex: Male

DRUGS (2)
  1. IMBRUVICA [Suspect]
     Active Substance: IBRUTINIB
     Indication: Product used for unknown indication
     Route: 048
     Dates: start: 202107
  2. LACTASE [Suspect]
     Active Substance: LACTASE
     Indication: Product used for unknown indication
     Route: 065

REACTIONS (3)
  - Arrhythmia [Unknown]
  - Disease progression [Unknown]
  - Diarrhoea [Unknown]
